FAERS Safety Report 16656091 (Version 1)
Quarter: 2019Q3

REPORT INFORMATION
  Report Type: Spontaneous
  Country: US (occurrence: US)
  Receive Date: 20190617
  Receipt Date: 20190617
  Transmission Date: 20191004
  Serious: Yes (Hospitalization)
  Sender: FDA-Public Use
  Company Number: None

PATIENT
  Age: 76 Year
  Sex: Male
  Weight: 94.35 kg

DRUGS (1)
  1. WARFARIN [Suspect]
     Active Substance: WARFARIN
     Indication: DEEP VEIN THROMBOSIS
     Route: 048
     Dates: start: 20180303, end: 20180414

REACTIONS (5)
  - Acute kidney injury [None]
  - Haemodialysis [None]
  - Tubulointerstitial nephritis [None]
  - Haematuria [None]
  - Anaemia [None]

NARRATIVE: CASE EVENT DATE: 20180315
